FAERS Safety Report 9365149 (Version 1)
Quarter: 2013Q2

REPORT INFORMATION
  Report Type: Spontaneous
  Country: GB (occurrence: GB)
  Receive Date: 20130624
  Receipt Date: 20130624
  Transmission Date: 20140414
  Serious: Yes (Other)
  Sender: FDA-Public Use
  Company Number: PHHY2013GB063275

PATIENT
  Age: 42 Year
  Sex: Male

DRUGS (5)
  1. TRIAMCINOLONE [Suspect]
     Dosage: 40 MG, UNK
     Route: 008
  2. RITONAVIR [Interacting]
  3. TENOFOVIR [Concomitant]
  4. EMTRICITABINE [Concomitant]
  5. DARUNAVIR [Concomitant]

REACTIONS (6)
  - Cushingoid [Unknown]
  - Acne [Unknown]
  - Hyperhidrosis [Unknown]
  - Increased appetite [Unknown]
  - Abdominal distension [Unknown]
  - Drug interaction [Unknown]
